FAERS Safety Report 12959846 (Version 3)
Quarter: 2017Q1

REPORT INFORMATION
  Report Type: Spontaneous
  Country: US (occurrence: US)
  Receive Date: 20161121
  Receipt Date: 20170130
  Transmission Date: 20170428
  Serious: No
  Sender: FDA-Public Use
  Company Number: US-GLAXOSMITHKLINE-US2016171185

PATIENT
  Sex: Female

DRUGS (3)
  1. BREO ELLIPTA [Suspect]
     Active Substance: FLUTICASONE FUROATE\VILANTEROL TRIFENATATE
     Indication: ASTHMA
     Dosage: 1 PUFF(S), WE
     Dates: start: 201610, end: 20161105
  2. VENTOLIN HFA [Concomitant]
     Active Substance: ALBUTEROL SULFATE
  3. MUCINEX [Concomitant]
     Active Substance: GUAIFENESIN

REACTIONS (4)
  - Fatigue [Recovered/Resolved]
  - Intentional underdose [Recovered/Resolved]
  - Asthenia [Recovered/Resolved]
  - Off label use [Recovered/Resolved]
